FAERS Safety Report 4653388-0 (Version None)
Quarter: 2005Q2

REPORT INFORMATION
  Report Type: 
  Country: None (occurrence: None)
  Receive Date: 20050503
  Receipt Date: 20050426
  Transmission Date: 20051028
  Serious: Yes (Death, Hospitalization)
  Sender: FDA-Public Use
  Company Number: 200510575GDS

PATIENT
  Age: 81 Year
  Sex: Male

DRUGS (7)
  1. PROFLOX (MOXIFLOXACIN) [Suspect]
     Indication: BRONCHITIS ACUTE
     Dosage: ORAL
     Route: 048
     Dates: start: 20050201
  2. ZINACEF [Concomitant]
  3. CEPHALOSPORIN NOS [Concomitant]
  4. BETA BLOCKER NOS [Concomitant]
  5. ACETYL SALICYLIC ACID USP BAT [Concomitant]
  6. SEDATIVE [Concomitant]
  7. TAVANIC [Concomitant]

REACTIONS (9)
  - CARDIAC FAILURE [None]
  - CARDIO-RESPIRATORY ARREST [None]
  - FEELING ABNORMAL [None]
  - LUNG INFILTRATION [None]
  - MOVEMENT DISORDER [None]
  - NEUROLOGICAL SYMPTOM [None]
  - RENAL FAILURE ACUTE [None]
  - RESPIRATORY FAILURE [None]
  - RESPIRATORY TRACT INFECTION [None]
